FAERS Safety Report 8330162-5 (Version None)
Quarter: 2012Q2

REPORT INFORMATION
  Report Type: 
  Country: None (occurrence: None)
  Receive Date: 20120502
  Receipt Date: 20100126
  Transmission Date: 20120825
  Serious: No
  Sender: FDA-Public Use
  Company Number: US-TEVA-2010000591

PATIENT
  Sex: Female
  Weight: 77.18 kg

DRUGS (8)
  1. FEXOFENADINE [Concomitant]
  2. NEXIUM [Concomitant]
  3. SINGULAIR [Concomitant]
  4. SYNTHROID [Concomitant]
  5. BIRTH CONTROL [Concomitant]
  6. CLONAZEPAM [Concomitant]
  7. HYDROXYZINE HCL [Concomitant]
  8. NUVIGIL [Suspect]
     Indication: SOMNOLENCE
     Dosage: 150 MILLIGRAM;
     Route: 048
     Dates: start: 20100122

REACTIONS (1)
  - DRUG INEFFECTIVE FOR UNAPPROVED INDICATION [None]
